FAERS Safety Report 8866423 (Version 2)
Quarter: 2012Q4

REPORT INFORMATION
  Report Type: 
  Country: GB (occurrence: GB)
  Receive Date: 20121025
  Receipt Date: 20121115
  Transmission Date: 20130627
  Serious: Yes (Other)
  Sender: FDA-Public Use
  Company Number: GB-PFIZER INC-2012266432

PATIENT
  Age: 50 Year
  Sex: Male

DRUGS (2)
  1. CHAMPIX [Suspect]
     Dosage: 1 DF, 2x/day
     Route: 048
  2. RANITIDINE [Concomitant]
     Dosage: 300 mg, 1x/day
     Route: 048

REACTIONS (2)
  - Alopecia [Unknown]
  - Pruritus [Unknown]
